FAERS Safety Report 13778075 (Version 1)
Quarter: 2017Q3

REPORT INFORMATION
  Report Type: Spontaneous
  Country: JP (occurrence: JP)
  Receive Date: 20170721
  Receipt Date: 20170721
  Transmission Date: 20171127
  Serious: Yes (Hospitalization)
  Sender: FDA-Public Use
  Company Number: JP-ELI_LILLY_AND_COMPANY-JP201707008365

PATIENT
  Age: 57 Year
  Sex: Female

DRUGS (2)
  1. DULOXETINE HYDROCHLORIDE. [Suspect]
     Active Substance: DULOXETINE HYDROCHLORIDE
     Indication: PAIN
     Dosage: 3 DF, DAILY
     Route: 048
     Dates: start: 201609, end: 20170320
  2. LYRICA [Suspect]
     Active Substance: PREGABALIN
     Indication: TUMOUR PAIN
     Dosage: 225 MG, BID
     Route: 048
     Dates: start: 201609, end: 20170320

REACTIONS (5)
  - Spinal cord neoplasm [Unknown]
  - Nightmare [Recovered/Resolved]
  - Off label use [Recovered/Resolved]
  - Intentional product misuse [Unknown]
  - Dizziness [Recovered/Resolved]

NARRATIVE: CASE EVENT DATE: 201609
